FAERS Safety Report 7076786-7 (Version None)
Quarter: 2010Q4

REPORT INFORMATION
  Report Type: 
  Country: None (occurrence: None)
  Receive Date: 20101029
  Receipt Date: 20101029
  Transmission Date: 20110411
  Serious: Yes (Other)
  Sender: FDA-Public Use
  Company Number: None

PATIENT
  Age: 54 Year
  Sex: Male

DRUGS (1)
  1. OXYCONTIN [Suspect]
     Indication: SURGERY
     Dosage: 2 40ML 3 TIMES A DAY
     Dates: start: 20100901, end: 20101001

REACTIONS (14)
  - ABDOMINAL PAIN UPPER [None]
  - ANGER [None]
  - COLD SWEAT [None]
  - DEPRESSION [None]
  - DIARRHOEA [None]
  - DRY MOUTH [None]
  - GINGIVAL BLEEDING [None]
  - PAIN [None]
  - PRODUCT FORMULATION ISSUE [None]
  - PRURITUS [None]
  - PYREXIA [None]
  - RASH [None]
  - RHINORRHOEA [None]
  - TREMOR [None]
